FAERS Safety Report 8956007 (Version 1)
Quarter: 2012Q4

REPORT INFORMATION
  Report Type: 
  Country: BR (occurrence: BR)
  Receive Date: 20121210
  Receipt Date: 20121210
  Transmission Date: 20130627
  Serious: Yes (Hospitalization, Other)
  Sender: FDA-Public Use
  Company Number: BR-ASTRAZENECA-2012SE91176

PATIENT
  Age: 47 Year
  Sex: Female

DRUGS (4)
  1. SELOZOK [Suspect]
     Indication: HYPERTENSION
     Route: 048
     Dates: start: 201202
  2. NOLVADEX D [Suspect]
     Indication: BREAST CANCER
     Route: 048
     Dates: start: 201209, end: 201211
  3. CITALOPRAM [Concomitant]
     Route: 048
  4. HYDROCHLORTHIAZIDE [Concomitant]
     Route: 048

REACTIONS (2)
  - Breast cancer [Unknown]
  - Endometrial hypertrophy [Recovered/Resolved]
